FAERS Safety Report 8974934 (Version 2)
Quarter: 2013Q2

REPORT INFORMATION
  Report Type: Spontaneous
  Country: CA (occurrence: CA)
  Receive Date: 20121220
  Receipt Date: 20130606
  Transmission Date: 20140414
  Serious: Yes (Hospitalization)
  Sender: FDA-Public Use
  Company Number: CA-AMGEN-CANSP2012076377

PATIENT
  Age: 69 Year
  Sex: Female
  Weight: 68.93 kg

DRUGS (9)
  1. ENBREL [Suspect]
     Indication: PSORIASIS
     Dosage: 50 MG, 2 TIMES/WK
     Route: 058
     Dates: start: 20090602, end: 20120917
  2. ENBREL [Suspect]
     Indication: PSORIATIC ARTHROPATHY
  3. CRESTOR [Concomitant]
     Dosage: UNK
  4. METOPROLOL [Concomitant]
     Dosage: UNK
  5. OMEPRAZOLE [Concomitant]
     Dosage: UNK
  6. SYNTHROID [Concomitant]
     Dosage: UNK
  7. EZETROL [Concomitant]
     Dosage: UNK
  8. ASA [Concomitant]
     Dosage: UNK
  9. DOVONEX [Concomitant]
     Dosage: UNK

REACTIONS (10)
  - Platelet count decreased [Recovered/Resolved]
  - Rash [Unknown]
  - Fatigue [Unknown]
  - Diarrhoea haemorrhagic [Unknown]
  - Haematemesis [Unknown]
  - Epistaxis [Not Recovered/Not Resolved]
  - Mobility decreased [Unknown]
  - Arthritis [Unknown]
  - Condition aggravated [Recovered/Resolved]
  - Psoriasis [Unknown]
